FAERS Safety Report 4625992-7 (Version None)
Quarter: 2005Q2

REPORT INFORMATION
  Report Type: 
  Country: None (occurrence: None)
  Receive Date: 20050404
  Receipt Date: 20050322
  Transmission Date: 20051028
  Serious: Yes (Life-Threatening, Hospitalization)
  Sender: FDA-Public Use
  Company Number: GB-JNJFOC-20050305373

PATIENT
  Age: 75 Year
  Sex: Female

DRUGS (6)
  1. GALANTAMINE [Suspect]
     Indication: DEMENTIA
     Route: 049
     Dates: start: 20041124, end: 20041220
  2. MOVICOL [Concomitant]
     Route: 065
  3. MOVICOL [Concomitant]
     Route: 065
  4. MOVICOL [Concomitant]
     Route: 065
  5. MOVICOL [Concomitant]
     Route: 065
  6. SENNA [Concomitant]
     Route: 065

REACTIONS (3)
  - BRADYCARDIA [None]
  - CIRCULATORY COLLAPSE [None]
  - SYNCOPE [None]
